FAERS Safety Report 5104247-0 (Version None)
Quarter: 2006Q3

REPORT INFORMATION
  Report Type: 
  Country: None (occurrence: None)
  Receive Date: 20060911
  Receipt Date: 20060829
  Transmission Date: 20061208
  Serious: Yes (Other)
  Sender: FDA-Public Use
  Company Number: 2006-DE-04552GD

PATIENT
  Sex: 0

DRUGS (2)
  1. PREDNISONE TAB [Suspect]
     Indication: MULTIPLE MYELOMA
  2. MELPHALAN (MELPHALAN) [Suspect]
     Indication: MULTIPLE MYELOMA

REACTIONS (1)
  - THROMBOPHLEBITIS SUPERFICIAL [None]
